FAERS Safety Report 11627734 (Version 1)
Quarter: 2015Q4

REPORT INFORMATION
  Report Type: Spontaneous
  Country: US (occurrence: US)
  Receive Date: 20151014
  Receipt Date: 20151014
  Transmission Date: 20160304
  Serious: No
  Sender: FDA-Public Use
  Company Number: US-HORIZON-RAV-0084-2015

PATIENT
  Age: 2 Year
  Sex: Male

DRUGS (1)
  1. RAVICTI [Suspect]
     Active Substance: GLYCEROL PHENYLBUTYRATE
     Indication: ARGININOSUCCINATE LYASE DEFICIENCY
     Dosage: 1.7 ML QID
     Route: 048
     Dates: start: 2015

REACTIONS (3)
  - Agitation [Unknown]
  - Aggression [Unknown]
  - Screaming [Unknown]
